FAERS Safety Report 11633643 (Version 2)
Quarter: 2015Q4

REPORT INFORMATION
  Report Type: Spontaneous
  Country: US (occurrence: US)
  Receive Date: 20151015
  Receipt Date: 20151030
  Transmission Date: 20160304
  Serious: Yes (Hospitalization, Other)
  Sender: FDA-Public Use
  Company Number: US-009507513-1510USA003622

PATIENT
  Sex: Male

DRUGS (2)
  1. PRINIVIL [Suspect]
     Active Substance: LISINOPRIL
     Indication: HYPERTENSION
     Dosage: 20 MG, 1 DF, QD
     Route: 048
  2. PRINIVIL [Suspect]
     Active Substance: LISINOPRIL
     Dosage: UNK UNK, UNKNOWN
     Route: 048

REACTIONS (10)
  - Oxygen saturation decreased [Unknown]
  - Hyperlipidaemia [Unknown]
  - Angioedema [Recovered/Resolved]
  - Drug hypersensitivity [Unknown]
  - Acute respiratory failure [Recovered/Resolved]
  - Lip swelling [Recovered/Resolved]
  - Cognitive disorder [Unknown]
  - Gastrooesophageal reflux disease [Unknown]
  - Chronic obstructive pulmonary disease [Unknown]
  - Depression [Unknown]

NARRATIVE: CASE EVENT DATE: 201510
